FAERS Safety Report 4906066-4 (Version None)
Quarter: 2006Q1

REPORT INFORMATION
  Report Type: 
  Country: None (occurrence: None)
  Receive Date: 20060207
  Receipt Date: 20060204
  Transmission Date: 20060701
  Serious: Yes (Life-Threatening, Hospitalization)
  Sender: FDA-Public Use
  Company Number: 219413

PATIENT
  Age: 75 Year
  Sex: Female

DRUGS (8)
  1. AVASTIN [Suspect]
     Indication: COLON CANCER
     Dosage: 350 MG Q2W, INTRAVENOUS
     Route: 042
     Dates: start: 20050905, end: 20051006
  2. IRINOTECAN HCL [Suspect]
     Indication: COLON CANCER
     Dosage: 300 MG, Q2W, INTRAVENOUS
     Route: 042
     Dates: start: 20050905, end: 20051006
  3. HYDROCHLOROTHIAZIDE [Concomitant]
  4. ACEBUTOLOL [Concomitant]
  5. METOCLOPRAMID-HCL (METOCLOPRAMIDE HYDROCHLORIDE) [Concomitant]
  6. LOPERAMIDE [Concomitant]
  7. FLUOROURACIL [Concomitant]
  8. CALCIUM FOLINATE (LEUCOVORIN CALCIUM) [Concomitant]

REACTIONS (2)
  - PERITONITIS [None]
  - SMALL INTESTINAL PERFORATION [None]
